FAERS Safety Report 7097117-2 (Version None)
Quarter: 2010Q4

REPORT INFORMATION
  Report Type: 
  Country: None (occurrence: None)
  Receive Date: 20101111
  Receipt Date: 20101104
  Transmission Date: 20110411
  Serious: Yes (Other)
  Sender: FDA-Public Use
  Company Number: GB-B.I. PHARMACEUTICALS,INC./RIDGEFIELD-2010-UK-01055UK

PATIENT
  Age: 61 Year
  Sex: Male
  Weight: 177 kg

DRUGS (5)
  1. PRADAXA [Suspect]
     Indication: THROMBOSIS PROPHYLAXIS
     Dosage: 220 MG
     Route: 048
     Dates: start: 20100714, end: 20100723
  2. DALTEPARIN SODIUM [Concomitant]
     Indication: THROMBOSIS PROPHYLAXIS
     Dosage: 5000 U
     Route: 058
     Dates: start: 20100709, end: 20100714
  3. GENERICS UK FRUSEMIDE BP [Concomitant]
  4. PERINDOPRIL [Concomitant]
  5. SIMVASTATIN [Concomitant]

REACTIONS (1)
  - PULMONARY EMBOLISM [None]
